FAERS Safety Report 8950290 (Version 1)
Quarter: 2012Q4

REPORT INFORMATION
  Report Type: 
  Country: US (occurrence: US)
  Receive Date: 20121205
  Receipt Date: 20121205
  Transmission Date: 20130627
  Serious: Yes (Hospitalization, Other)
  Sender: FDA-Public Use
  Company Number: US-MPIJNJ-2012-08506

PATIENT
  Age: 75 Year
  Sex: Female

DRUGS (5)
  1. VELCADE [Suspect]
     Indication: MULTIPLE MYELOMA
     Dosage: 2.2 mg, Cyclic
     Route: 065
     Dates: start: 20111208, end: 20111212
  2. REVLIMID [Suspect]
     Indication: MULTIPLE MYELOMA
     Dosage: 15 mg, Cyclic
     Route: 048
     Dates: start: 20111209, end: 20120220
  3. REVLIMID [Suspect]
     Dosage: 5 UNK, UNK
     Route: 048
     Dates: start: 20121005
  4. DEXAMETHASONE [Suspect]
     Indication: MULTIPLE MYELOMA
     Dosage: 20 mg, 1/week
     Route: 065
     Dates: start: 20111208, end: 20111212
  5. COREG [Concomitant]
     Indication: CARDIAC FAILURE CONGESTIVE
     Dosage: 3.125 mg, qd
     Route: 065
     Dates: start: 20111216

REACTIONS (4)
  - Tricuspid valve incompetence [Recovering/Resolving]
  - Cardiac failure congestive [Recovering/Resolving]
  - Anaemia [Recovering/Resolving]
  - Myocardial infarction [Recovering/Resolving]
